FAERS Safety Report 10313012 (Version 2)
Quarter: 2014Q1

REPORT INFORMATION
  Report Type: Spontaneous
  Country: US (occurrence: None)
  Receive Date: 20120817
  Receipt Date: 20130815
  Transmission Date: 20141002
  Serious: Yes (Other)
  Sender: FDA-Public Use
  Company Number: ADR-2012-01030

PATIENT
  Sex: Male

DRUGS (3)
  1. LIORESAL [Suspect]
     Indication: PARAPLEGIA
  2. LIORESAL [Suspect]
     Indication: PAIN
  3. FENTANYL [Concomitant]

REACTIONS (2)
  - Muscle spasticity [None]
  - Cystitis [None]
